FAERS Safety Report 15298370 (Version 2)
Quarter: 2018Q3

REPORT INFORMATION
  Report Type: Spontaneous
  Country: DE (occurrence: DE)
  Receive Date: 20180820
  Receipt Date: 20180821
  Transmission Date: 20181010
  Serious: Yes (Life-Threatening, Hospitalization, Other)
  Sender: FDA-Public Use
  Company Number: DE-LINDE-DE-LHC-2018199

PATIENT
  Age: 1 Day
  Sex: Male
  Weight: 2.34 kg

DRUGS (1)
  1. OXYGEN (GENERIC) [Suspect]
     Active Substance: OXYGEN
     Indication: PULMONARY HYPERTENSION

REACTIONS (1)
  - Drug ineffective [Recovered/Resolved]
